FAERS Safety Report 7058765-9 (Version None)
Quarter: 2010Q4

REPORT INFORMATION
  Report Type: 
  Country: None (occurrence: None)
  Receive Date: 20101022
  Receipt Date: 20101011
  Transmission Date: 20110411
  Serious: Yes (Hospitalization)
  Sender: FDA-Public Use
  Company Number: NO-CEPHALON-2010005567

PATIENT
  Sex: Female

DRUGS (4)
  1. TREANDA [Suspect]
     Indication: B-CELL SMALL LYMPHOCYTIC LYMPHOMA
     Route: 042
     Dates: start: 20101004
  2. MORPHINE [Suspect]
     Route: 048
  3. PREDNISOLONE [Concomitant]
  4. IBUX [Concomitant]

REACTIONS (20)
  - BALANCE DISORDER [None]
  - BLOOD LACTATE DEHYDROGENASE DECREASED [None]
  - ESCHERICHIA URINARY TRACT INFECTION [None]
  - INADEQUATE ANALGESIA [None]
  - LYMPHADENOPATHY [None]
  - METASTASES TO NERVOUS SYSTEM [None]
  - MUSCULAR WEAKNESS [None]
  - NECK PAIN [None]
  - NEURITIS [None]
  - NEUROPATHY PERIPHERAL [None]
  - NEUTROPENIA [None]
  - PAIN IN EXTREMITY [None]
  - PERIPHERAL SENSORIMOTOR NEUROPATHY [None]
  - PYREXIA [None]
  - RASH ERYTHEMATOUS [None]
  - RASH PAPULAR [None]
  - RASH PRURITIC [None]
  - SPEECH DISORDER [None]
  - TENDON INJURY [None]
  - THROMBOCYTOPENIA [None]
